FAERS Safety Report 11930405 (Version 1)
Quarter: 2016Q1

REPORT INFORMATION
  Report Type: Spontaneous
  Country: US (occurrence: US)
  Receive Date: 20160120
  Receipt Date: 20160120
  Transmission Date: 20160526
  Serious: Yes (Other)
  Sender: FDA-Public Use
  Company Number: US-JNJFOC-20160105472

PATIENT
  Age: 58 Year
  Sex: Female
  Weight: 53.52 kg

DRUGS (2)
  1. TYLENOL PM EXTRA STRENGTH [Suspect]
     Active Substance: ACETAMINOPHEN\DIPHENHYDRAMINE HYDROCHLORIDE
     Indication: BACK PAIN
     Dosage: 1 CAPLET, 1X, WHEN NEEDED OFF AND ON FOR ABOUT 2 YEARS
     Route: 048
  2. TYLENOL PM EXTRA STRENGTH [Suspect]
     Active Substance: ACETAMINOPHEN\DIPHENHYDRAMINE HYDROCHLORIDE
     Indication: SLEEP DISORDER
     Dosage: 1 CAPLET, 1X, WHEN NEEDED OFF AND ON FOR ABOUT 2 YEARS
     Route: 048

REACTIONS (5)
  - Dry mouth [Unknown]
  - Product difficult to swallow [Unknown]
  - Dehydration [Unknown]
  - Urinary retention [Unknown]
  - Lip dry [Unknown]
